FAERS Safety Report 22109545 (Version 2)
Quarter: 2023Q1

REPORT INFORMATION
  Report Type: Spontaneous
  Country: US (occurrence: US)
  Receive Date: 20230317
  Receipt Date: 20230322
  Transmission Date: 20230418
  Serious: Yes (Other)
  Sender: FDA-Public Use
  Company Number: US-PFIZER INC-PV202300046897

PATIENT
  Age: 60 Year
  Sex: Female

DRUGS (2)
  1. EUCRISA [Suspect]
     Active Substance: CRISABOROLE
     Indication: Seborrhoeic dermatitis
     Dosage: APPLY TO AFFECTED AREAS ON THE SCALP BID X 2 WEEKS THEN QD (EVERY DAY) X 2 WEEKS DAYS
  2. EUCRISA [Suspect]
     Active Substance: CRISABOROLE
     Indication: Alopecia

REACTIONS (7)
  - Knee arthroplasty [Unknown]
  - Systemic lupus erythematosus [Unknown]
  - Neuralgia [Unknown]
  - Nerve compression [Unknown]
  - Gait disturbance [Unknown]
  - Sitting disability [Unknown]
  - Off label use [Unknown]
